FAERS Safety Report 9326365 (Version 7)
Quarter: 2013Q3

REPORT INFORMATION
  Report Type: Spontaneous
  Country: US (occurrence: US)
  Receive Date: 20130604
  Receipt Date: 20130701
  Transmission Date: 20140515
  Serious: Yes (Death, Hospitalization, Other)
  Sender: FDA-Public Use
  Company Number: US-JNJFOC-20130600341

PATIENT
  Age: 58 Year
  Sex: Male
  Weight: 107 kg

DRUGS (1)
  1. XARELTO [Suspect]
     Indication: DEEP VEIN THROMBOSIS
     Dosage: STRENGTH: 15 MG
     Route: 048
     Dates: start: 20130418, end: 201305

REACTIONS (3)
  - Death [Fatal]
  - Pulmonary haemorrhage [Unknown]
  - Pulmonary embolism [Unknown]
